FAERS Safety Report 7460670-0 (Version None)
Quarter: 2011Q2

REPORT INFORMATION
  Report Type: 
  Country: None (occurrence: None)
  Receive Date: 20110505
  Receipt Date: 20110428
  Transmission Date: 20111010
  Serious: Yes (Other)
  Sender: FDA-Public Use
  Company Number: IE-BAXTER-2011BH013586

PATIENT
  Age: 31 Year
  Sex: Female
  Weight: 57 kg

DRUGS (5)
  1. PARACETAMOL [Concomitant]
     Indication: PREMEDICATION
     Route: 048
     Dates: start: 20110427
  2. RITUXIMAB [Suspect]
     Indication: PRODUCT USED FOR UNKNOWN INDICATION
     Route: 042
     Dates: start: 20110427, end: 20110427
  3. PREDNISOLONE [Concomitant]
     Indication: PREMEDICATION
     Route: 048
     Dates: start: 20110427
  4. SODIUM CHLORIDE 0.9% IN PLASTIC CONTAINER [Suspect]
     Indication: MEDICATION DILUTION
     Route: 042
     Dates: start: 20110427, end: 20110427
  5. CHLORPHENAMINE [Concomitant]
     Indication: PREMEDICATION
     Route: 048
     Dates: start: 20110427

REACTIONS (3)
  - TACHYCARDIA [None]
  - COLD SWEAT [None]
  - DYSPNOEA [None]
